FAERS Safety Report 8515565-8 (Version None)
Quarter: 2012Q3

REPORT INFORMATION
  Report Type: 
  Country: None (occurrence: None)
  Receive Date: 20120717
  Receipt Date: 20120710
  Transmission Date: 20120928
  Serious: Yes (Hospitalization, Other)
  Sender: FDA-Public Use
  Company Number: PHHY2012BR029160

PATIENT
  Sex: Female

DRUGS (1)
  1. DIOVAN TRIPLE [Suspect]
     Indication: HYPERTENSION
     Dosage: 1 TABLET (160MG VALS,10 MG AMLO AND 12.5MG HCTZ) DAILY
     Dates: start: 20110917

REACTIONS (7)
  - MALAISE [None]
  - INSOMNIA [None]
  - ASTHMA [None]
  - DEVICE BREAKAGE [None]
  - NASAL DISCOMFORT [None]
  - RESPIRATORY DISORDER [None]
  - APHONIA [None]
